FAERS Safety Report 7211517-9 (Version None)
Quarter: 2010Q4

REPORT INFORMATION
  Report Type: 
  Country: None (occurrence: None)
  Receive Date: 20101227
  Receipt Date: 20101214
  Transmission Date: 20110411
  Serious: Yes (Other)
  Sender: FDA-Public Use
  Company Number: 2010AL002410

PATIENT
  Sex: Male

DRUGS (2)
  1. IBUPROFEN [Suspect]
     Indication: FASCIITIS
     Dosage: 5 PCT; TOP
     Route: 061
     Dates: start: 20090901
  2. RAMIPRIL [Concomitant]

REACTIONS (3)
  - HYPERSENSITIVITY [None]
  - NO REACTION ON PREVIOUS EXPOSURE TO DRUG [None]
  - SNEEZING [None]
